FAERS Safety Report 10079156 (Version 1)
Quarter: 2014Q2

REPORT INFORMATION
  Report Type: Spontaneous
  Country: US (occurrence: US)
  Receive Date: 20140415
  Receipt Date: 20140415
  Transmission Date: 20141212
  Serious: No
  Sender: FDA-Public Use
  Company Number: US-009507513-1404USA008533

PATIENT
  Sex: Male

DRUGS (2)
  1. DULERA [Suspect]
     Route: 055
  2. PLACEBO (UNSPECIFIED) [Concomitant]

REACTIONS (1)
  - Fatigue [Unknown]
